FAERS Safety Report 26113862 (Version 2)
Quarter: 2025Q4

REPORT INFORMATION
  Report Type: Spontaneous
  Country: US (occurrence: US)
  Receive Date: 20251202
  Receipt Date: 20251216
  Transmission Date: 20260118
  Serious: No
  Sender: CIPLA
  Company Number: US-CIPLA LTD.-2025US14856

PATIENT

DRUGS (2)
  1. TESTOSTERONE [Suspect]
     Active Substance: TESTOSTERONE
     Indication: Product used for unknown indication
     Dosage: UNK (200MG/ML-1ML VIAL)
     Route: 065
  2. TESTOSTERONE [Suspect]
     Active Substance: TESTOSTERONE
     Dosage: UNK (200MG/ML-1ML VIAL)
     Route: 065

REACTIONS (4)
  - Product dose omission issue [Unknown]
  - Product deposit [Unknown]
  - Product quality issue [Unknown]
  - Wrong technique in product usage process [Unknown]
